FAERS Safety Report 6588366-8 (Version None)
Quarter: 2010Q1

REPORT INFORMATION
  Report Type: 
  Country: None (occurrence: None)
  Receive Date: 20100218
  Receipt Date: 20100210
  Transmission Date: 20100710
  Serious: Yes (Other)
  Sender: FDA-Public Use
  Company Number: ES-ROCHE-683811

PATIENT
  Sex: Male
  Weight: 72 kg

DRUGS (3)
  1. AVASTIN [Suspect]
     Indication: RENAL CANCER
     Dosage: FREQUENCY: CYCLIC
     Route: 042
     Dates: start: 20090928, end: 20091210
  2. AVASTIN [Suspect]
     Route: 042
     Dates: start: 20100112, end: 20100126
  3. ROFERON-A [Concomitant]
     Indication: RENAL CANCER
     Route: 058
     Dates: start: 20090928, end: 20100122

REACTIONS (2)
  - GINGIVITIS [None]
  - MUCOSAL INFLAMMATION [None]
